FAERS Safety Report 8507747 (Version 2)
Quarter: 2012Q4

REPORT INFORMATION
  Report Type: 
  Country: US (occurrence: US)
  Receive Date: 20120412
  Receipt Date: 20120910
  Transmission Date: 20130627
  Serious: No
  Sender: FDA-Public Use
  Company Number: US-ASTRAZENECA-2011SE61574

PATIENT
  Age: 51 Year
  Sex: Male

DRUGS (2)
  1. NEXIUM [Suspect]
     Route: 048
  2. PRILOSEC [Suspect]
     Route: 048

REACTIONS (7)
  - Gastrointestinal disorder [Unknown]
  - Adverse drug reaction [Unknown]
  - Hiatus hernia [Unknown]
  - Haemoptysis [Unknown]
  - Middle insomnia [Unknown]
  - Drug dose omission [Unknown]
  - Drug effect incomplete [Unknown]
